FAERS Safety Report 8397185-1 (Version None)
Quarter: 2012Q2

REPORT INFORMATION
  Report Type: 
  Country: None (occurrence: None)
  Receive Date: 20120530
  Receipt Date: 20120524
  Transmission Date: 20120825
  Serious: Yes (Hospitalization, Other)
  Sender: FDA-Public Use
  Company Number: US-PFIZER INC-2012126439

PATIENT
  Sex: Male
  Weight: 74.83 kg

DRUGS (1)
  1. DILANTIN [Suspect]
     Indication: CONVULSION
     Dosage: 300 MG (THREE OF 100MG) , 1X/DAY
     Route: 048
     Dates: end: 20111101

REACTIONS (3)
  - GRAND MAL CONVULSION [None]
  - DEPRESSION [None]
  - PETIT MAL EPILEPSY [None]
